FAERS Safety Report 8455001-3 (Version None)
Quarter: 2012Q2

REPORT INFORMATION
  Report Type: 
  Country: None (occurrence: None)
  Receive Date: 20120621
  Receipt Date: 20120614
  Transmission Date: 20120825
  Serious: No
  Sender: FDA-Public Use
  Company Number: US-PFIZER INC-2012144609

PATIENT
  Age: 45 Year
  Sex: Female

DRUGS (2)
  1. IBUPROFEN [Suspect]
     Dosage: UNK
  2. CELEBREX [Suspect]
     Indication: ARTHRALGIA
     Dosage: 200 MG,1 QAM

REACTIONS (1)
  - OEDEMA PERIPHERAL [None]
